FAERS Safety Report 23169105 (Version 1)
Quarter: 2023Q4

REPORT INFORMATION
  Report Type: Spontaneous
  Country: CN (occurrence: CN)
  Receive Date: 20231110
  Receipt Date: 20231110
  Transmission Date: 20240110
  Serious: Yes (Other)
  Sender: FDA-Public Use
  Company Number: CN-002147023-NVSC2023CN200852

PATIENT
  Age: 53 Year
  Sex: Female

DRUGS (5)
  1. ZOLEDRONIC ACID [Suspect]
     Active Substance: ZOLEDRONIC ACID
     Indication: Metastases to bone
     Dosage: UNK
     Route: 065
     Dates: start: 20180618, end: 201902
  2. OSIMERTINIB [Concomitant]
     Active Substance: OSIMERTINIB
     Indication: Lung adenocarcinoma stage IV
     Dosage: 80 MG, QD
     Route: 048
     Dates: start: 201704
  3. OSIMERTINIB [Concomitant]
     Active Substance: OSIMERTINIB
     Indication: Metastases to adrenals
  4. OSIMERTINIB [Concomitant]
     Active Substance: OSIMERTINIB
     Indication: Metastases to bone
  5. OSIMERTINIB [Concomitant]
     Active Substance: OSIMERTINIB
     Indication: Metastases to central nervous system

REACTIONS (1)
  - Osteonecrosis of jaw [Recovered/Resolved]

NARRATIVE: CASE EVENT DATE: 20190201
